FAERS Safety Report 12717054 (Version 5)
Quarter: 2017Q3

REPORT INFORMATION
  Report Type: Report from Study
  Country: US (occurrence: US)
  Receive Date: 20160906
  Receipt Date: 20170728
  Transmission Date: 20171127
  Serious: Yes (Death, Other)
  Sender: FDA-Public Use
  Company Number: US-ASTELLAS-2016US032291

PATIENT
  Sex: Male
  Weight: 53 kg

DRUGS (19)
  1. XGEVA [Concomitant]
     Active Substance: DENOSUMAB
     Indication: PRODUCT USED FOR UNKNOWN INDICATION
     Dosage: UNK UNK, UNKNOWN FREQ.
     Route: 065
  2. ERLOTINIB [Suspect]
     Active Substance: ERLOTINIB
     Indication: LUNG NEOPLASM MALIGNANT
     Route: 048
     Dates: start: 201604
  3. ERLOTINIB [Suspect]
     Active Substance: ERLOTINIB
     Indication: NON-SMALL CELL LUNG CANCER STAGE IV
     Dates: start: 20160510
  4. ZOFRAN [Concomitant]
     Active Substance: ONDANSETRON HYDROCHLORIDE
     Indication: PRODUCT USED FOR UNKNOWN INDICATION
     Dosage: UNK UNK, UNKNOWN FREQ.
     Route: 065
  5. CODEINE SULFATE. [Concomitant]
     Active Substance: CODEINE SULFATE
     Indication: PRODUCT USED FOR UNKNOWN INDICATION
     Dosage: UNK UNK, UNKNOWN FREQ.
     Route: 065
  6. PERCOCET                           /00446701/ [Concomitant]
     Active Substance: ACETAMINOPHEN\OXYCODONE HYDROCHLORIDE\OXYCODONE TEREPHTHALATE
     Indication: BREAKTHROUGH PAIN
     Dosage: UNK UNK, UNKNOWN FREQ.
     Route: 065
  7. CALCIUM [Concomitant]
     Active Substance: CALCIUM
     Indication: PRODUCT USED FOR UNKNOWN INDICATION
     Dosage: UNK UNK, UNKNOWN FREQ.
     Route: 065
  8. ERLOTINIB [Suspect]
     Active Substance: ERLOTINIB
     Indication: THYROID CANCER
     Dates: start: 20161121
  9. FISH OIL [Concomitant]
     Active Substance: FISH OIL
     Indication: PRODUCT USED FOR UNKNOWN INDICATION
     Dosage: UNK UNK, UNKNOWN FREQ.
     Route: 065
  10. KEPPRA [Concomitant]
     Active Substance: LEVETIRACETAM
     Indication: GENERALISED TONIC-CLONIC SEIZURE
     Route: 065
  11. SYMBICORT [Concomitant]
     Active Substance: BUDESONIDE\FORMOTEROL FUMARATE DIHYDRATE
     Indication: PRODUCT USED FOR UNKNOWN INDICATION
     Dosage: UNK UNK, UNKNOWN FREQ.
     Route: 065
  12. TAMSULOSIN [Concomitant]
     Active Substance: TAMSULOSIN
     Indication: PRODUCT USED FOR UNKNOWN INDICATION
     Dosage: UNK UNK, UNKNOWN FREQ.
     Route: 065
  13. FLONASE [Concomitant]
     Active Substance: FLUTICASONE PROPIONATE
     Indication: PRODUCT USED FOR UNKNOWN INDICATION
     Dosage: UNK UNK, UNKNOWN FREQ.
     Route: 065
  14. VITAMIN D3 [Concomitant]
     Active Substance: CHOLECALCIFEROL
     Indication: PRODUCT USED FOR UNKNOWN INDICATION
     Dosage: UNK UNK, UNKNOWN FREQ.
     Route: 065
  15. ERLOTINIB [Suspect]
     Active Substance: ERLOTINIB
     Indication: BONE CANCER
     Dates: start: 20170110
  16. ERLOTINIB [Suspect]
     Active Substance: ERLOTINIB
     Indication: METASTASES TO CENTRAL NERVOUS SYSTEM
     Dates: start: 20160506
  17. KEPPRA [Concomitant]
     Active Substance: LEVETIRACETAM
     Indication: GENERALISED TONIC-CLONIC SEIZURE
  18. ATIVAN [Concomitant]
     Active Substance: LORAZEPAM
     Indication: PRODUCT USED FOR UNKNOWN INDICATION
     Dosage: UNK UNK, UNKNOWN FREQ.
     Route: 065
  19. MS CONTIN [Concomitant]
     Active Substance: MORPHINE SULFATE
     Indication: PAIN
     Route: 065

REACTIONS (29)
  - Photosensitivity reaction [Not Recovered/Not Resolved]
  - Fatigue [Unknown]
  - Weight decreased [Fatal]
  - Nail discolouration [Not Recovered/Not Resolved]
  - Amnesia [Not Recovered/Not Resolved]
  - Dyspepsia [Unknown]
  - Rash macular [Unknown]
  - Fatigue [Not Recovered/Not Resolved]
  - Rash [Unknown]
  - Skin atrophy [Unknown]
  - Hypoacusis [Unknown]
  - Muscle atrophy [Not Recovered/Not Resolved]
  - Pain [Not Recovered/Not Resolved]
  - Eye irritation [Unknown]
  - Bone scan abnormal [Unknown]
  - Pollakiuria [Unknown]
  - Liver function test decreased [Unknown]
  - Nasal congestion [Unknown]
  - Growth of eyelashes [Unknown]
  - Malaise [Not Recovered/Not Resolved]
  - Nausea [Unknown]
  - Deafness [Not Recovered/Not Resolved]
  - Anxiety [Not Recovered/Not Resolved]
  - Anaemia [Unknown]
  - Acne [Recovering/Resolving]
  - Decreased appetite [Unknown]
  - Constipation [Unknown]
  - Dry skin [Recovering/Resolving]
  - Rash [Recovered/Resolved]
